FAERS Safety Report 10233196 (Version 2)
Quarter: 2014Q3

REPORT INFORMATION
  Report Type: Spontaneous
  Country: US (occurrence: US)
  Receive Date: 20140612
  Receipt Date: 20140926
  Transmission Date: 20150326
  Serious: Yes (Other)
  Sender: FDA-Public Use
  Company Number: US-BAYER-2014-085285

PATIENT
  Age: 31 Year
  Sex: Female
  Weight: 81.63 kg

DRUGS (7)
  1. VITAMIN D [Concomitant]
     Active Substance: CHOLECALCIFEROL
  2. VALIUM [Concomitant]
     Active Substance: DIAZEPAM
     Indication: ANXIETY
     Dosage: UNK
     Dates: start: 200805, end: 2014
  3. MIRENA [Suspect]
     Active Substance: LEVONORGESTREL
     Indication: CONTRACEPTION
     Dosage: 20 MCG/24HR, CONT
     Route: 015
     Dates: start: 20120913, end: 20130204
  4. METOPROLOL [Concomitant]
     Active Substance: METOPROLOL
  5. LOPRESSOR [Concomitant]
     Active Substance: METOPROLOL TARTRATE
  6. CELEXA [Concomitant]
     Active Substance: CITALOPRAM HYDROBROMIDE
  7. PAXIL [Concomitant]
     Active Substance: PAROXETINE HYDROCHLORIDE

REACTIONS (14)
  - Pelvic pain [None]
  - Emotional distress [None]
  - Genital haemorrhage [None]
  - Fear [None]
  - Uterine perforation [None]
  - Abdominal pain [None]
  - Injury [None]
  - Internal injury [None]
  - Anxiety [None]
  - Device dislocation [None]
  - Discomfort [None]
  - Depression [None]
  - Device issue [None]
  - Depressed mood [None]

NARRATIVE: CASE EVENT DATE: 2012
